FAERS Safety Report 8133945-X (Version None)
Quarter: 2012Q1

REPORT INFORMATION
  Report Type: 
  Country: None (occurrence: None)
  Receive Date: 20120213
  Receipt Date: 20120209
  Transmission Date: 20120608
  Serious: Yes (Life-Threatening, Hospitalization)
  Sender: FDA-Public Use
  Company Number: FR-ASTRAZENECA-2011SE78759

PATIENT
  Age: 58 Year
  Sex: Male
  Weight: 70 kg

DRUGS (7)
  1. NOZINAN [Concomitant]
     Indication: PSYCHOTIC DISORDER
  2. TRANXENE [Concomitant]
     Indication: ANXIOLYTIC THERAPY
  3. ALFUZOSIN HCL [Concomitant]
     Indication: PROSTATIC DISORDER
     Route: 048
  4. QUETIAPINE FUMARATE [Suspect]
     Indication: PSYCHOTIC DISORDER
     Route: 048
     Dates: start: 20111213, end: 20111218
  5. QUETIAPINE FUMARATE [Suspect]
     Route: 048
     Dates: start: 20111219, end: 20111226
  6. THERALITE [Concomitant]
     Indication: THYMUS DISORDER
     Dosage: ONE 250 GM TABLET IN THE MORNING AND ONE 250 MG TABLET IN THE EVENING
     Route: 048
  7. LEPTICUR [Concomitant]
     Indication: PARKINSONISM
     Dosage: ONE TABLET IN THE MORNING AND ONE TABLET IN THE EVENING
     Route: 048
     Dates: start: 20111213

REACTIONS (6)
  - PROSTATITIS [None]
  - HYPOTENSION [None]
  - LUNG DISORDER [None]
  - HYPOTHERMIA [None]
  - OXYGEN SATURATION DECREASED [None]
  - BRADYCARDIA [None]
